FAERS Safety Report 24147275 (Version 1)
Quarter: 2024Q3

REPORT INFORMATION
  Report Type: Spontaneous
  Country: US (occurrence: None)
  Receive Date: 20240729
  Receipt Date: 20240729
  Transmission Date: 20241017
  Serious: Yes (Hospitalization)
  Sender: Public
  Company Number: None

PATIENT
  Age: 86 Year
  Sex: Male

DRUGS (2)
  1. DROXIDOPA [Suspect]
     Active Substance: DROXIDOPA
     Indication: Orthostatic hypotension
     Dosage: FREQ: TAKE 1 CAPSULE BY MOUTH EVERY MORNING AND 1 CAPSULE BY MOUTH EVERY EVENING
     Route: 048
     Dates: start: 20230808
  2. BOOSTRIX [Concomitant]

REACTIONS (2)
  - Loss of consciousness [None]
  - Blood pressure abnormal [None]

NARRATIVE: CASE EVENT DATE: 20240716
